FAERS Safety Report 7675543-8 (Version None)
Quarter: 2011Q3

REPORT INFORMATION
  Report Type: 
  Country: None (occurrence: None)
  Receive Date: 20110810
  Receipt Date: 20110728
  Transmission Date: 20111222
  Serious: Yes (Other)
  Sender: FDA-Public Use
  Company Number: PHHY2011US68358

PATIENT
  Sex: Female

DRUGS (10)
  1. ALLOPURINOL [Suspect]
     Dosage: 25 MG, QD
     Dates: start: 20100326, end: 20100416
  2. DYAZIDE [Suspect]
  3. NORVASC [Suspect]
     Dosage: 20 MG, QD
  4. SPIRONOLACTONE [Suspect]
     Dosage: 25 MG, UNK
  5. DIOVAN [Suspect]
     Dosage: 120 MG, UNK
  6. DIOVAN [Suspect]
     Dosage: 80 MG, UNK
  7. LASIX [Suspect]
  8. ASCORBIC ACID [Concomitant]
     Dosage: 500 MG, UNK
  9. TYLENOL-500 [Concomitant]
  10. SPIRONOLACTONE [Concomitant]
     Dosage: 25 MG, UNK

REACTIONS (8)
  - GOUT [None]
  - PYREXIA [None]
  - RASH [None]
  - OTORRHOEA [None]
  - BLOOD PRESSURE SYSTOLIC INCREASED [None]
  - OEDEMA PERIPHERAL [None]
  - BLOOD URIC ACID INCREASED [None]
  - BLOOD PRESSURE DIASTOLIC DECREASED [None]
